FAERS Safety Report 13100829 (Version 1)
Quarter: 2017Q1

REPORT INFORMATION
  Report Type: Spontaneous
  Country: IT (occurrence: IT)
  Receive Date: 20170110
  Receipt Date: 20170110
  Transmission Date: 20170428
  Serious: Yes (Hospitalization)
  Sender: FDA-Public Use
  Company Number: IT-SA-2017SA002409

PATIENT
  Age: 73 Year
  Sex: Female

DRUGS (13)
  1. APIDRA SOLOSTAR [Suspect]
     Active Substance: INSULIN GLULISINE
     Dosage: DOSE:58 UNIT(S)
     Route: 058
  2. BISOPROLOL HEMIFUMARATE [Concomitant]
     Active Substance: BISOPROLOL FUMARATE
  3. FLEXTOUCH [Concomitant]
     Active Substance: DEVICE
  4. SOLOSTAR [Concomitant]
     Active Substance: DEVICE
  5. FUROSEMIDE. [Concomitant]
     Active Substance: FUROSEMIDE
  6. GLICONORM [Suspect]
     Active Substance: GLYBURIDE\METFORMIN
     Indication: DIABETES MELLITUS
     Dosage: - 5 MG + 500 MG FILM-COATED TABLETS DOSE:3 UNIT(S)
     Route: 048
  7. DIGOXIN. [Concomitant]
     Active Substance: DIGOXIN
  8. TRESIBA [Suspect]
     Active Substance: INSULIN DEGLUDEC
     Route: 058
  9. AMLODIPINE BESILATE [Concomitant]
     Active Substance: AMLODIPINE BESYLATE
  10. HYDROCHLOROTHIAZIDE/VALSARTAN [Concomitant]
  11. WARFARIN SODIUM. [Concomitant]
     Active Substance: WARFARIN SODIUM
  12. APIDRA SOLOSTAR [Suspect]
     Active Substance: INSULIN GLULISINE
     Dosage: 20 + 20 + 20 IU
     Route: 058
  13. SIMVASTATIN/EZETIMIBE [Concomitant]

REACTIONS (3)
  - Speech disorder [Recovered/Resolved]
  - Hypoglycaemia [Recovered/Resolved]
  - Fatigue [Recovered/Resolved]

NARRATIVE: CASE EVENT DATE: 20161216
